FAERS Safety Report 6471811-6 (Version None)
Quarter: 2009Q4

REPORT INFORMATION
  Report Type: 
  Country: None (occurrence: None)
  Receive Date: 20091203
  Receipt Date: 20080818
  Transmission Date: 20100525
  Serious: Yes (Life-Threatening, Other)
  Sender: FDA-Public Use
  Company Number: IE-ELI_LILLY_AND_COMPANY-IE200803006813

PATIENT
  Sex: Female
  Weight: 110.9 kg

DRUGS (8)
  1. BYETTA [Suspect]
     Indication: TYPE 2 DIABETES MELLITUS
     Dosage: 5 UG, 2/D
     Route: 058
     Dates: start: 20070516, end: 20070710
  2. BYETTA [Suspect]
     Dates: start: 20070901
  3. GLUCOPHAGE [Concomitant]
     Indication: TYPE 2 DIABETES MELLITUS
     Dosage: 500 MG, 2/D
     Route: 048
  4. LIPITOR [Concomitant]
     Indication: HYPERLIPIDAEMIA
     Dosage: 20 MG, UNKNOWN
     Route: 048
  5. NU-SEALS ASPIRIN [Concomitant]
     Indication: PROPHYLAXIS
     Dosage: 75 MG, UNKNOWN
     Route: 048
  6. NEURONTIN [Concomitant]
     Indication: PAIN
     Dosage: 300 MG, 3/D
     Route: 048
  7. EFFEXOR [Concomitant]
     Indication: DEPRESSION
  8. ARIMIDEX [Concomitant]
     Indication: BREAST CANCER
     Dosage: UNK, UNKNOWN
     Route: 048

REACTIONS (2)
  - CARDIAC FAILURE [None]
  - MYOCARDIAL ISCHAEMIA [None]
